FAERS Safety Report 13265935 (Version 1)
Quarter: 2017Q1

REPORT INFORMATION
  Report Type: Spontaneous
  Country: US (occurrence: US)
  Receive Date: 20170223
  Receipt Date: 20170223
  Transmission Date: 20170428
  Serious: Yes (Other)
  Sender: FDA-Public Use
  Company Number: US-TEVA-741221USA

PATIENT
  Sex: Female
  Weight: 79.45 kg

DRUGS (2)
  1. PROAIR HFA [Suspect]
     Active Substance: ALBUTEROL SULFATE
     Indication: NASOPHARYNGITIS
     Route: 065
     Dates: start: 20160225
  2. PROAIR HFA [Suspect]
     Active Substance: ALBUTEROL SULFATE
     Indication: WHEEZING

REACTIONS (4)
  - Product use issue [Unknown]
  - Malignant melanoma [Unknown]
  - Wheezing [Unknown]
  - Contusion [Unknown]

NARRATIVE: CASE EVENT DATE: 2016
